FAERS Safety Report 8208851-2 (Version None)
Quarter: 2012Q1

REPORT INFORMATION
  Report Type: 
  Country: None (occurrence: None)
  Receive Date: 20120314
  Receipt Date: 20120308
  Transmission Date: 20120608
  Serious: Yes (Disabling, Other)
  Sender: FDA-Public Use
  Company Number: IT-PFIZER INC-2012062796

PATIENT
  Age: 81 Year
  Sex: Female

DRUGS (2)
  1. ATORVASTATIN CALCIUM [Suspect]
     Indication: ACUTE CORONARY SYNDROME
     Dosage: 80 MG, 1X/DAY
     Route: 048
     Dates: start: 20120104, end: 20120218
  2. LEVOFLOXACIN [Suspect]
     Indication: UPPER RESPIRATORY TRACT INFECTION
     Dosage: 500 MG, 1X/DAY
     Route: 048
     Dates: start: 20120205, end: 20120213

REACTIONS (8)
  - RENAL FAILURE ACUTE [None]
  - POLYMYOSITIS [None]
  - TROPONIN INCREASED [None]
  - ASTHENIA [None]
  - WHITE BLOOD CELL COUNT INCREASED [None]
  - RHABDOMYOLYSIS [None]
  - MUSCULAR WEAKNESS [None]
  - BLOOD ALBUMIN INCREASED [None]
